FAERS Safety Report 23989501 (Version 2)
Quarter: 2024Q2

REPORT INFORMATION
  Report Type: Spontaneous
  Country: US (occurrence: US)
  Receive Date: 20240619
  Receipt Date: 20240625
  Transmission Date: 20240716
  Serious: Yes (Other)
  Sender: FDA-Public Use
  Company Number: US-TEVA-VS-3208135

PATIENT
  Age: 67 Year
  Sex: Female

DRUGS (2)
  1. AUSTEDO [Suspect]
     Active Substance: DEUTETRABENAZINE
     Indication: Tardive dyskinesia
     Dosage: TIME INTERVAL: 0.33333333 DAYS: (2 TABLETS IN THE MORNING AND 1 TABLET IN THE EVENING)
     Route: 065
  2. AUSTEDO [Suspect]
     Active Substance: DEUTETRABENAZINE
     Indication: Tardive dyskinesia
     Dosage: 12MG TABLETS, 2 TABLETS TWICE DAILY
     Route: 065

REACTIONS (3)
  - Tardive dyskinesia [Unknown]
  - Intentional product use issue [Unknown]
  - Anxiety [Unknown]
